FAERS Safety Report 5337066-0 (Version None)
Quarter: 2007Q2

REPORT INFORMATION
  Report Type: 
  Country: None (occurrence: None)
  Receive Date: 20070523
  Receipt Date: 20070510
  Transmission Date: 20071010
  Serious: Yes (Death)
  Sender: FDA-Public Use
  Company Number: 2007AL000868

PATIENT
  Age: 79 Year
  Sex: Male

DRUGS (8)
  1. FLUOXETINE [Suspect]
     Indication: DEPRESSION
     Dosage: 30 MG; QD; PO
     Route: 048
     Dates: start: 20060808
  2. METHOTREXATE SODIUM [Concomitant]
  3. WARFARIN SODIUM [Concomitant]
  4. DIGOXIN [Concomitant]
  5. CO-DYDRAMOL [Concomitant]
  6. SULFASALAZINE [Concomitant]
  7. FOLIC ACID [Concomitant]
  8. PRAZOSIN HCL [Concomitant]

REACTIONS (1)
  - PNEUMONIA [None]
